FAERS Safety Report 7460114-9 (Version None)
Quarter: 2011Q2

REPORT INFORMATION
  Report Type: 
  Country: None (occurrence: None)
  Receive Date: 20110505
  Receipt Date: 20110429
  Transmission Date: 20111010
  Serious: Yes (Hospitalization, Other)
  Sender: FDA-Public Use
  Company Number: US-ELI_LILLY_AND_COMPANY-US201103002709

PATIENT
  Sex: Male
  Weight: 113.38 kg

DRUGS (3)
  1. HUMALOG [Suspect]
     Dosage: 10 U, OTHER
     Dates: start: 20101201
  2. HUMALOG [Suspect]
     Indication: DIABETES MELLITUS
     Dosage: 35 U, UNKNOWN
     Dates: start: 20101201
  3. LANTUS [Concomitant]
     Dosage: UNK, UNKNOWN

REACTIONS (2)
  - BLOOD GLUCOSE DECREASED [None]
  - WRONG DRUG ADMINISTERED [None]
